FAERS Safety Report 5089053-8 (Version None)
Quarter: 2006Q3

REPORT INFORMATION
  Report Type: 
  Country: None (occurrence: None)
  Receive Date: 20060825
  Receipt Date: 20060811
  Transmission Date: 20061208
  Serious: Yes (Hospitalization)
  Sender: FDA-Public Use
  Company Number: 2006UW16102

PATIENT
  Age: 77 Year
  Sex: Male
  Weight: 90.7 kg

DRUGS (5)
  1. CRESTOR [Suspect]
     Indication: VASCULAR BYPASS GRAFT
     Route: 048
     Dates: start: 20060717, end: 20060811
  2. TOPROL-XL [Concomitant]
     Route: 048
     Dates: start: 20060601, end: 20060811
  3. PREVACID [Concomitant]
  4. ALLEGRA [Concomitant]
  5. ASPIRIN [Concomitant]

REACTIONS (3)
  - ASTHENIA [None]
  - MUSCULAR WEAKNESS [None]
  - PERITONEAL DISORDER [None]
